FAERS Safety Report 21883550 (Version 3)
Quarter: 2023Q1

REPORT INFORMATION
  Report Type: Spontaneous
  Country: ZA (occurrence: ZA)
  Receive Date: 20230119
  Receipt Date: 20230209
  Transmission Date: 20230418
  Serious: Yes (Other)
  Sender: FDA-Public Use
  Company Number: ZA-CELLTRION INC.-2022ZA012079

PATIENT

DRUGS (16)
  1. INFLIXIMAB [Suspect]
     Active Substance: INFLIXIMAB
     Indication: Crohn^s disease
     Dosage: 350MG INTRAVENOUS INFUSIONS AT 0 WEEKS; 2 WEEKS; 6 WEEK AND 8 WEEKLY INTERVALS.
     Route: 041
     Dates: start: 20210331
  2. INFLIXIMAB [Suspect]
     Active Substance: INFLIXIMAB
     Dosage: 350MG INTRAVENOUS INFUSIONS AT 0 WEEKS; 2 WEEKS; 6 WEEK AND 8 WEEKLY INTERVALS.
     Route: 041
     Dates: start: 20210415
  3. INFLIXIMAB [Suspect]
     Active Substance: INFLIXIMAB
     Dosage: 350MG INTRAVENOUS INFUSIONS AT 0 WEEKS; 2 WEEKS; 6 WEEK AND 8 WEEKLY INTERVALS.
     Route: 041
     Dates: start: 20210512
  4. INFLIXIMAB [Suspect]
     Active Substance: INFLIXIMAB
     Dosage: 350MG INTRAVENOUS INFUSIONS AT 0 WEEKS; 2 WEEKS; 6 WEEK AND 8 WEEKLY INTERVALS.
     Route: 041
     Dates: start: 20210708
  5. INFLIXIMAB [Suspect]
     Active Substance: INFLIXIMAB
     Dosage: 350MG INTRAVENOUS INFUSIONS AT 0 WEEKS; 2 WEEKS; 6 WEEK AND 8 WEEKLY INTERVALS.
     Route: 041
     Dates: start: 20210802
  6. INFLIXIMAB [Suspect]
     Active Substance: INFLIXIMAB
     Dosage: 350MG INTRAVENOUS INFUSIONS AT 0 WEEKS; 2 WEEKS; 6 WEEK AND 8 WEEKLY INTERVALS.
     Route: 041
     Dates: start: 20211028
  7. INFLIXIMAB [Suspect]
     Active Substance: INFLIXIMAB
     Dosage: 350MG INTRAVENOUS INFUSIONS AT 0 WEEKS; 2 WEEKS; 6 WEEK AND 8 WEEKLY INTERVALS.
     Route: 041
     Dates: start: 20211207
  8. INFLIXIMAB [Suspect]
     Active Substance: INFLIXIMAB
     Dosage: 350MG INTRAVENOUS INFUSIONS AT 0 WEEKS; 2 WEEKS; 6 WEEK AND 8 WEEKLY INTERVALS.
     Route: 041
     Dates: start: 20220209
  9. INFLIXIMAB [Suspect]
     Active Substance: INFLIXIMAB
     Dosage: 350MG INTRAVENOUS INFUSIONS AT 0 WEEKS; 2 WEEKS; 6 WEEK AND 8 WEEKLY INTERVALS.
     Route: 041
     Dates: start: 20220426
  10. INFLIXIMAB [Suspect]
     Active Substance: INFLIXIMAB
     Dosage: 350MG INTRAVENOUS INFUSIONS AT 0 WEEKS; 2 WEEKS; 6 WEEK AND 8 WEEKLY INTERVALS.
     Route: 041
     Dates: start: 20220621
  11. INFLIXIMAB [Suspect]
     Active Substance: INFLIXIMAB
     Dosage: 350MG INTRAVENOUS INFUSIONS AT 0 WEEKS; 2 WEEKS; 6 WEEK AND 8 WEEKLY INTERVALS.
     Route: 041
     Dates: start: 20220816
  12. INFLIXIMAB [Suspect]
     Active Substance: INFLIXIMAB
     Dosage: 350MG INTRAVENOUS INFUSIONS AT 0 WEEKS; 2 WEEKS; 6 WEEK AND 8 WEEKLY INTERVALS.
     Route: 041
     Dates: start: 20220920
  13. INFLIXIMAB [Suspect]
     Active Substance: INFLIXIMAB
     Dosage: 350MG INTRAVENOUS INFUSIONS AT 0 WEEKS; 2 WEEKS; 6 WEEK AND 8 WEEKLY INTERVALS.
     Route: 041
     Dates: start: 20221115
  14. INFLIXIMAB [Suspect]
     Active Substance: INFLIXIMAB
     Dosage: 350MG INTRAVENOUS INFUSIONS AT 0 WEEKS; 2 WEEKS; 6 WEEK AND 8 WEEKLY INTERVALS.
     Route: 041
     Dates: start: 20230118
  15. AZATHIOPRINE [Concomitant]
     Active Substance: AZATHIOPRINE
     Indication: Crohn^s disease
     Dosage: UNK
     Dates: start: 2020
  16. MESALAMINE [Concomitant]
     Active Substance: MESALAMINE
     Indication: Crohn^s disease
     Dosage: UNK
     Dates: start: 2020

REACTIONS (8)
  - Crohn^s disease [Unknown]
  - Disease progression [Unknown]
  - Erythema nodosum [Not Recovered/Not Resolved]
  - Eating disorder [Not Recovered/Not Resolved]
  - Diarrhoea [Not Recovered/Not Resolved]
  - Fatigue [Not Recovered/Not Resolved]
  - Drug ineffective [Not Recovered/Not Resolved]
  - Overdose [Unknown]

NARRATIVE: CASE EVENT DATE: 20220724
